FAERS Safety Report 9809447 (Version 1)
Quarter: 2014Q1

REPORT INFORMATION
  Report Type: Spontaneous
  Country: US (occurrence: US)
  Receive Date: 20140110
  Receipt Date: 20140110
  Transmission Date: 20141002
  Serious: Yes (Other)
  Sender: FDA-Public Use
  Company Number: US-TEVA-455118USA

PATIENT
  Age: 69 Year
  Sex: Female
  Weight: 90.35 kg

DRUGS (10)
  1. NUVIGIL [Suspect]
     Indication: SOMNOLENCE
     Dates: start: 2012, end: 20131123
  2. CYMBALTA [Concomitant]
     Indication: DEPRESSION
  3. EVISTA [Concomitant]
     Indication: OSTEOPOROSIS
  4. CELEBREX [Concomitant]
     Indication: ARTHRITIS
  5. NEXIUM [Concomitant]
     Indication: ULCER HAEMORRHAGE
  6. NORVASC [Concomitant]
     Indication: HYPERTENSION
  7. LYRICA [Concomitant]
     Indication: FIBROMYALGIA
  8. TRAZADONE [Concomitant]
     Indication: DEPRESSION
  9. PERCOCET [Concomitant]
     Indication: BACK PAIN
  10. LEVAQUIN [Concomitant]
     Indication: UPPER RESPIRATORY TRACT INFECTION

REACTIONS (14)
  - Grand mal convulsion [Recovered/Resolved]
  - Confusional state [Not Recovered/Not Resolved]
  - Fall [Not Recovered/Not Resolved]
  - Pain in jaw [Not Recovered/Not Resolved]
  - Pain in extremity [Not Recovered/Not Resolved]
  - Upper respiratory tract infection [Not Recovered/Not Resolved]
  - Mobility decreased [Recovered/Resolved]
  - Disturbance in attention [Not Recovered/Not Resolved]
  - Disturbance in attention [Not Recovered/Not Resolved]
  - Crying [Recovered/Resolved]
  - Feeling abnormal [Recovered/Resolved]
  - Mouth injury [Not Recovered/Not Resolved]
  - Oral disorder [Not Recovered/Not Resolved]
  - Oral pain [Not Recovered/Not Resolved]
